FAERS Safety Report 10435755 (Version 4)
Quarter: 2014Q4

REPORT INFORMATION
  Report Type: Spontaneous
  Country: JP (occurrence: JP)
  Receive Date: 20140908
  Receipt Date: 20141005
  Transmission Date: 20150528
  Serious: Yes (Other)
  Sender: FDA-Public Use
  Company Number: JP-JNJFOC-20140900191

PATIENT
  Age: 68 Year
  Sex: Female

DRUGS (2)
  1. MAGNESIUM OXIDE. [Concomitant]
     Active Substance: MAGNESIUM OXIDE
     Indication: PRODUCT USED FOR UNKNOWN INDICATION
     Route: 048
  2. ONEDURO [Suspect]
     Active Substance: FENTANYL
     Indication: PAIN
     Route: 062
     Dates: start: 20140708

REACTIONS (7)
  - Drug withdrawal syndrome [Recovered/Resolved]
  - Depression [Unknown]
  - Apathy [Unknown]
  - Abdominal discomfort [Unknown]
  - Drug dose omission [Unknown]
  - Malaise [Unknown]
  - Disturbance in attention [Unknown]
